FAERS Safety Report 9734236 (Version 1)
Quarter: 2013Q4

REPORT INFORMATION
  Report Type: Spontaneous
  Country: JP (occurrence: JP)
  Receive Date: 20131205
  Receipt Date: 20131205
  Transmission Date: 20140711
  Serious: Yes (Other)
  Sender: FDA-Public Use
  Company Number: JP-GILEAD-2013-0089110

PATIENT
  Sex: 0

DRUGS (2)
  1. HEPSERA [Suspect]
     Indication: HEPATITIS B
     Dosage: UNK
     Route: 048
     Dates: end: 20131126
  2. ZEFIX                              /01221401/ [Concomitant]
     Route: 048

REACTIONS (2)
  - Treatment noncompliance [Unknown]
  - Fanconi syndrome acquired [Unknown]
